FAERS Safety Report 7968408-5 (Version None)
Quarter: 2011Q4

REPORT INFORMATION
  Report Type: 
  Country: None (occurrence: None)
  Receive Date: 20111209
  Receipt Date: 20111124
  Transmission Date: 20120403
  Serious: Yes (Other)
  Sender: FDA-Public Use
  Company Number: DE-BAYER-2011-113425

PATIENT
  Age: 27 Year
  Sex: Female

DRUGS (2)
  1. BETASERON [Suspect]
     Indication: RELAPSING-REMITTING MULTIPLE SCLEROSIS
     Dosage: UNK
     Route: 058
     Dates: start: 20040101, end: 20080101
  2. BETASERON [Suspect]

REACTIONS (7)
  - NEUTRALISING ANTIBODIES POSITIVE [None]
  - SPINAL DISORDER [None]
  - MYALGIA [None]
  - NO ADVERSE EVENT [None]
  - HEADACHE [None]
  - PARAPLEGIA [None]
  - MULTIPLE SCLEROSIS RELAPSE [None]
